FAERS Safety Report 21125497 (Version 1)
Quarter: 2022Q3

REPORT INFORMATION
  Report Type: Spontaneous
  Country: US (occurrence: US)
  Receive Date: 20220725
  Receipt Date: 20220725
  Transmission Date: 20221026
  Serious: No
  Sender: FDA-Public Use
  Company Number: US-MEDEXUS PHARMA, INC.-2022MED00271

PATIENT
  Age: 80 Year
  Sex: Female
  Weight: 93.424 kg

DRUGS (3)
  1. RASUVO [Suspect]
     Active Substance: METHOTREXATE SODIUM
     Indication: Rheumatoid arthritis
     Dosage: 17.5 MG, 1X/WEEK IN THIGH
     Dates: end: 202205
  2. RASUVO [Suspect]
     Active Substance: METHOTREXATE SODIUM
     Dosage: 17.5 MG, 1X/WEEK IN THIGH
     Dates: start: 202205
  3. COVID SHOTS AND BOOSTERS (Pfizer) [Concomitant]

REACTIONS (1)
  - COVID-19 [Recovered/Resolved]

NARRATIVE: CASE EVENT DATE: 20220501
